FAERS Safety Report 14652705 (Version 3)
Quarter: 2018Q4

REPORT INFORMATION
  Report Type: Spontaneous
  Country: CA (occurrence: CA)
  Receive Date: 20180319
  Receipt Date: 20181227
  Transmission Date: 20190204
  Serious: Yes (Hospitalization)
  Sender: FDA-Public Use
  Company Number: CA-ALEXION PHARMACEUTICALS INC-A201802927

PATIENT
  Age: 8 Month
  Sex: Female

DRUGS (6)
  1. SOLIRIS [Suspect]
     Active Substance: ECULIZUMAB
     Dosage: 300 MG, 17 DAY INTERVAL
     Route: 065
  2. SOLIRIS [Suspect]
     Active Substance: ECULIZUMAB
     Dosage: 300 MG, 14 DAY INTERVAL
     Route: 065
  3. SOLIRIS [Suspect]
     Active Substance: ECULIZUMAB
     Dosage: 300 MG, 18 DAY INTERVAL
     Route: 065
  4. SOLIRIS [Suspect]
     Active Substance: ECULIZUMAB
     Dosage: 300 MG, Q3W
     Route: 042
  5. SOLIRIS [Suspect]
     Active Substance: ECULIZUMAB
     Indication: THROMBOTIC MICROANGIOPATHY
     Dosage: 300 MG, 1 WEEK LATER
     Route: 042
  6. SOLIRIS [Suspect]
     Active Substance: ECULIZUMAB
     Indication: ATYPICAL HAEMOLYTIC URAEMIC SYNDROME
     Dosage: 300 MG, 1ST WEEK
     Route: 042
     Dates: start: 2017

REACTIONS (10)
  - Inappropriate schedule of product administration [Unknown]
  - Treatment failure [Not Recovered/Not Resolved]
  - Feeding intolerance [Unknown]
  - Total complement activity decreased [Unknown]
  - Weight decreased [Unknown]
  - Poor weight gain neonatal [Not Recovered/Not Resolved]
  - Vomiting [Recovering/Resolving]
  - Cystatin C abnormal [Unknown]
  - Glomerular filtration rate decreased [Unknown]
  - Respiratory syncytial virus infection [Unknown]
